FAERS Safety Report 12672786 (Version 2)
Quarter: 2019Q1

REPORT INFORMATION
  Report Type: Spontaneous
  Country: US (occurrence: US)
  Receive Date: 20160822
  Receipt Date: 20190301
  Transmission Date: 20190417
  Serious: No
  Sender: FDA-Public Use
  Company Number: US-JNJFOC-20160804925

PATIENT
  Sex: Male

DRUGS (2)
  1. MENS ROGAINE [Suspect]
     Active Substance: MINOXIDIL
     Indication: PRODUCT USED FOR UNKNOWN INDICATION
     Route: 065
  2. MENS ROGAINE [Suspect]
     Active Substance: MINOXIDIL
     Route: 065

REACTIONS (2)
  - Skin discolouration [Unknown]
  - Product complaint [Unknown]
